FAERS Safety Report 8347411-X (Version None)
Quarter: 2012Q2

REPORT INFORMATION
  Report Type: 
  Country: None (occurrence: None)
  Receive Date: 20120509
  Receipt Date: 20120430
  Transmission Date: 20120825
  Serious: Yes (Life-Threatening, Hospitalization)
  Sender: FDA-Public Use
  Company Number: US-ROCHE-1055144

PATIENT
  Age: 38 Year
  Sex: Male

DRUGS (3)
  1. MYCOPHENOLATE MOFETIL (CELLCEPT) [Suspect]
     Indication: RENAL TRANSPLANT
     Route: 048
  2. PROGRAF [Concomitant]
     Route: 048
  3. MYCOPHENOLATE MOFETIL (CELLCEPT) [Suspect]
     Route: 042

REACTIONS (2)
  - GASTRIC BYPASS [None]
  - MEDICAL INDUCTION OF COMA [None]
